FAERS Safety Report 6152307-8 (Version None)
Quarter: 2009Q2

REPORT INFORMATION
  Report Type: 
  Country: None (occurrence: None)
  Receive Date: 20090410
  Receipt Date: 20090331
  Transmission Date: 20091009
  Serious: Yes (Death)
  Sender: FDA-Public Use
  Company Number: IE-GENENTECH-280614

PATIENT
  Age: 72 Year
  Sex: Female

DRUGS (7)
  1. RAPTIVA [Suspect]
     Indication: ACRODERMATITIS
     Dosage: UNK
  2. INFLIXIMAB [Suspect]
     Indication: ACRODERMATITIS
     Dosage: 5 MG/KG, Q8W
  3. METHOTREXATE [Suspect]
     Indication: ACRODERMATITIS
     Dosage: 10 MG, 1/WEEK
  4. ETANERCEPT [Suspect]
     Indication: ACRODERMATITIS
     Dosage: 50 MG, 2/WEEK
  5. CYCLOSPORINE [Suspect]
     Indication: ACRODERMATITIS
     Dosage: 5 MG/KG, QD
  6. ADALIMUMAB [Suspect]
     Indication: ACRODERMATITIS
     Dosage: 40 MG, 1/WEEK
  7. ADALIMUMAB [Suspect]
     Indication: THERAPEUTIC PROCEDURE
     Dosage: UNK

REACTIONS (2)
  - LUNG CANCER METASTATIC [None]
  - UNEVALUABLE EVENT [None]
